FAERS Safety Report 4365511-6 (Version None)
Quarter: 2004Q2

REPORT INFORMATION
  Report Type: 
  Country: None (occurrence: None)
  Receive Date: 20040526
  Receipt Date: 20020905
  Transmission Date: 20050107
  Serious: Yes (Death)
  Sender: FDA-Public Use
  Company Number: US-GLAXOSMITHKLINE-A0380601A

PATIENT
  Age: 37 Year
  Sex: Male
  Weight: 90.9 kg

DRUGS (2)
  1. PAXIL [Suspect]
     Dosage: 20MG PER DAY
     Route: 048
     Dates: start: 20000807
  2. NASACORT [Concomitant]

REACTIONS (5)
  - COMPLETED SUICIDE [None]
  - CONTUSION [None]
  - DEPRESSION [None]
  - DERMATITIS CONTACT [None]
  - GUN SHOT WOUND [None]
